FAERS Safety Report 8444603-6 (Version None)
Quarter: 2012Q2

REPORT INFORMATION
  Report Type: 
  Country: None (occurrence: None)
  Receive Date: 20120618
  Receipt Date: 20120609
  Transmission Date: 20120825
  Serious: Yes (Hospitalization)
  Sender: FDA-Public Use
  Company Number: US-BAYER-2011-034369

PATIENT
  Age: 28 Year
  Sex: Female
  Weight: 72.562 kg

DRUGS (15)
  1. YASMIN [Suspect]
     Indication: CONTRACEPTION
     Dosage: UNK
     Dates: start: 20050901, end: 20060701
  2. ZOLOFT [Concomitant]
     Dosage: 50 MG, 1/2 TABLET EVERY DAY FOR 3 DAYS, THEN 1 TABLET EVERY DAY FOR 3 DAYS, THEN 2 TABLETS EVERY DAY
  3. YASMIN [Suspect]
     Indication: ACNE
  4. ACETAMINOPHEN [Concomitant]
     Indication: HEADACHE
     Dosage: UNK UNK, BIW
     Dates: start: 20060711, end: 20060713
  5. PERCOCET [Concomitant]
     Dosage: UNK
  6. SIMPLY SLEEP [Concomitant]
     Indication: SLEEP DISORDER THERAPY
     Dosage: UNK UNK, BIW
     Dates: start: 20060714, end: 20060715
  7. ZOLOFT [Concomitant]
     Dosage: 200 MG, QD
     Dates: start: 20070125
  8. YASMIN [Suspect]
     Indication: PREMENSTRUAL SYNDROME
  9. ZOLOFT [Concomitant]
     Dosage: 100 MG, UNK
  10. LORTAB [Concomitant]
     Indication: PAIN
     Dosage: 7.5 MG, UNK
     Dates: start: 19990801
  11. IMITREX [Concomitant]
     Dosage: UNK
  12. MIDRIN [Concomitant]
     Indication: MIGRAINE
     Dosage: UNK UNK, PRN
     Dates: start: 19990101, end: 20060101
  13. ZOLOFT [Concomitant]
     Dosage: UNK
     Dates: end: 20060601
  14. NAPROXEN (ALEVE) [Concomitant]
     Indication: HEADACHE
     Dosage: UNK UNK, OW
     Dates: start: 20060712
  15. ZOFRAN [Concomitant]

REACTIONS (10)
  - PAIN [None]
  - CHOLECYSTITIS CHRONIC [None]
  - DYSPNOEA [None]
  - EMOTIONAL DISTRESS [None]
  - ANXIETY [None]
  - GENERAL PHYSICAL HEALTH DETERIORATION [None]
  - CHOLELITHIASIS [None]
  - PULMONARY EMBOLISM [None]
  - INJURY [None]
  - DEPRESSION [None]
